FAERS Safety Report 4554789-1 (Version None)
Quarter: 2005Q1

REPORT INFORMATION
  Report Type: 
  Country: None (occurrence: None)
  Receive Date: 20050118
  Receipt Date: 20050107
  Transmission Date: 20050727
  Serious: Yes (Death)
  Sender: FDA-Public Use
  Company Number: CA-JNJFOC-20050102230

PATIENT
  Sex: Male

DRUGS (2)
  1. DURAGESIC [Suspect]
     Indication: DRUG USE FOR UNKNOWN INDICATION
     Route: 062
  2. TYLENOL W/ CODEINE NO. 3 [Concomitant]
     Route: 049

REACTIONS (5)
  - ACCIDENTAL OVERDOSE [None]
  - ASPHYXIA [None]
  - FOREIGN BODY ASPIRATION [None]
  - INTENTIONAL MISUSE [None]
  - NARCOTIC INTOXICATION [None]
